FAERS Safety Report 22292063 (Version 1)
Quarter: 2023Q2

REPORT INFORMATION
  Report Type: Spontaneous
  Country: PT (occurrence: PT)
  Receive Date: 20230508
  Receipt Date: 20230508
  Transmission Date: 20230721
  Serious: Yes (Hospitalization, Other)
  Sender: FDA-Public Use
  Company Number: PT-TECNIFAR-000126

PATIENT
  Age: 77 Year
  Sex: Male

DRUGS (1)
  1. NAPROXEN [Suspect]
     Active Substance: NAPROXEN
     Indication: Arthralgia
     Dosage: UNK
     Route: 065

REACTIONS (3)
  - Eosinophilia [Recovered/Resolved]
  - Pericardial effusion [Recovered/Resolved]
  - Eosinophilic pleural effusion [Recovered/Resolved]
